FAERS Safety Report 4593944-1 (Version None)
Quarter: 2005Q1

REPORT INFORMATION
  Report Type: 
  Country: None (occurrence: None)
  Receive Date: 20050301
  Receipt Date: 20050216
  Transmission Date: 20050727
  Serious: Yes (Other)
  Sender: FDA-Public Use
  Company Number: ES-MERCK-0502ESP00049

PATIENT
  Age: 45 Year
  Sex: Male

DRUGS (4)
  1. SINGULAIR [Suspect]
     Indication: BRONCHOSPASM
     Route: 048
     Dates: start: 20050201, end: 20050201
  2. SINGULAIR [Suspect]
     Indication: WHEEZING
     Route: 048
     Dates: start: 20050201, end: 20050201
  3. MEPIFYLLINE [Concomitant]
     Indication: BRONCHOSPASM
     Route: 048
     Dates: start: 20050201
  4. MEPIFYLLINE [Concomitant]
     Indication: WHEEZING
     Route: 048
     Dates: start: 20050201

REACTIONS (3)
  - ANXIETY [None]
  - IRRITABILITY [None]
  - NERVOUSNESS [None]
